FAERS Safety Report 9502402 (Version 3)
Quarter: 2013Q4

REPORT INFORMATION
  Report Type: Spontaneous
  Country: FR (occurrence: FR)
  Receive Date: 20130906
  Receipt Date: 20131025
  Transmission Date: 20140711
  Serious: Yes (Hospitalization, Other)
  Sender: FDA-Public Use
  Company Number: FR-AMGEN-FRASP2013061452

PATIENT
  Sex: Male
  Weight: 52 kg

DRUGS (6)
  1. ARANESP [Suspect]
     Indication: ANAEMIA
     Dosage: 500 UNK, Q3WK
     Route: 058
     Dates: start: 20130727, end: 20130727
  2. OXYCONTIN [Concomitant]
     Dosage: 15 MG, BID
     Route: 048
  3. MEDROL                             /00049601/ [Concomitant]
     Dosage: 50 MG, UNK
     Route: 048
  4. DIFFU K [Concomitant]
     Dosage: 600 MG, BID
     Route: 048
  5. TAHOR [Concomitant]
     Route: 048
  6. KARDEGIC [Concomitant]
     Route: 048

REACTIONS (5)
  - Coronary artery embolism [Unknown]
  - Aphasia [Not Recovered/Not Resolved]
  - Hemiplegia [Not Recovered/Not Resolved]
  - Cerebral artery embolism [Unknown]
  - Cerebrovascular accident [Not Recovered/Not Resolved]
